FAERS Safety Report 5798933-7 (Version None)
Quarter: 2008Q3

REPORT INFORMATION
  Report Type: 
  Country: None (occurrence: None)
  Receive Date: 20080702
  Receipt Date: 20080620
  Transmission Date: 20090109
  Serious: Yes (Hospitalization)
  Sender: FDA-Public Use
  Company Number: US-PFIZER INC-2006084928

PATIENT
  Sex: Male
  Weight: 66 kg

DRUGS (19)
  1. SUTENT [Suspect]
     Indication: PROSTATE CANCER
     Route: 048
     Dates: start: 20060628, end: 20060706
  2. SUTENT [Suspect]
     Route: 048
     Dates: start: 20060709, end: 20060710
  3. COREG [Concomitant]
     Route: 048
  4. DIGOXIN [Concomitant]
     Route: 048
     Dates: start: 20000418
  5. LOTREL [Concomitant]
     Route: 048
     Dates: start: 20041125
  6. ASPIRIN [Concomitant]
     Route: 048
     Dates: start: 19960901
  7. CALCITRIOL [Concomitant]
     Route: 048
     Dates: start: 20011114
  8. FLONASE [Concomitant]
     Route: 045
     Dates: start: 20060123
  9. MONTELUKAST SODIUM [Concomitant]
     Route: 048
     Dates: start: 20050123
  10. HUMIBID LA [Concomitant]
     Route: 048
     Dates: start: 20050527
  11. NORCO [Concomitant]
     Route: 048
     Dates: start: 20050701
  12. LIPITOR [Concomitant]
     Route: 048
     Dates: start: 20000211
  13. TRICOR [Concomitant]
     Route: 048
     Dates: start: 20021027
  14. NIACIN [Concomitant]
     Route: 048
     Dates: start: 20030101
  15. PANTETHINE [Concomitant]
     Route: 048
     Dates: start: 20030101
  16. ACTOS [Concomitant]
     Route: 048
     Dates: start: 20040215
  17. BUPROPION HCL [Concomitant]
     Route: 048
     Dates: start: 20020703
  18. ZOLOFT [Concomitant]
     Route: 048
     Dates: start: 19990107
  19. SENOKOT [Concomitant]
     Route: 048
     Dates: start: 20060524

REACTIONS (1)
  - PAROTITIS [None]
